FAERS Safety Report 10023344 (Version 1)
Quarter: 2014Q1

REPORT INFORMATION
  Report Type: Spontaneous
  Country: US (occurrence: US)
  Receive Date: 20140320
  Receipt Date: 20140320
  Transmission Date: 20141002
  Serious: Yes (Other)
  Sender: FDA-Public Use
  Company Number: US-AMGEN-USASP2014018295

PATIENT
  Age: 58 Year
  Sex: Male

DRUGS (3)
  1. PROLIA [Suspect]
     Indication: PRODUCT USED FOR UNKNOWN INDICATION
     Dosage: UNK
     Route: 065
     Dates: start: 20140226
  2. PLAVIX [Concomitant]
     Route: 065
  3. CALCIUM [Concomitant]
     Dosage: 4000 MG, UNK
     Route: 065

REACTIONS (4)
  - Lower respiratory tract infection [Recovering/Resolving]
  - Night sweats [Unknown]
  - Muscle spasms [Unknown]
  - Myalgia [Unknown]
